FAERS Safety Report 25920709 (Version 3)
Quarter: 2025Q4

REPORT INFORMATION
  Report Type: Spontaneous
  Country: CN (occurrence: CN)
  Receive Date: 20251014
  Receipt Date: 20251214
  Transmission Date: 20260118
  Serious: Yes (Death)
  Sender: PFIZER
  Company Number: CN-PFIZER INC-PV202500120981

PATIENT
  Age: 77 Year
  Sex: Female

DRUGS (1)
  1. SUTENT [Suspect]
     Active Substance: SUNITINIB MALATE
     Indication: Rectal cancer
     Dosage: 3 DF, 1X/DAY
     Route: 048
     Dates: start: 20250901, end: 20250911

REACTIONS (2)
  - Cerebral haemorrhage [Fatal]
  - Off label use [Unknown]

NARRATIVE: CASE EVENT DATE: 20250901
